FAERS Safety Report 9886337 (Version 1)
Quarter: 2014Q1

REPORT INFORMATION
  Report Type: Spontaneous
  Country: US (occurrence: US)
  Receive Date: 20140210
  Receipt Date: 20140210
  Transmission Date: 20141002
  Serious: Yes (Hospitalization, Other)
  Sender: FDA-Public Use
  Company Number: US-TEVA-461074USA

PATIENT
  Age: 3 Year
  Sex: Female

DRUGS (3)
  1. METHYLPREDNISOLONE [Suspect]
     Indication: IMMUNE THROMBOCYTOPENIC PURPURA
     Dosage: 8MG OR 0.5MG/KG
     Route: 065
  2. IMMUNE GLOBULIN [Suspect]
     Indication: IMMUNE THROMBOCYTOPENIC PURPURA
     Dosage: 1G/KG INFUSED OVER 6HOURS FOLLOWED BY SECOND DOSE ABOUT 24H LATER
     Route: 041
  3. DIPHENHYDRAMINE [Concomitant]
     Indication: PREMEDICATION
     Route: 065

REACTIONS (2)
  - Cerebral infarction [Recovering/Resolving]
  - Convulsion [Recovered/Resolved]
